FAERS Safety Report 7824802-4 (Version None)
Quarter: 2011Q4

REPORT INFORMATION
  Report Type: 
  Country: None (occurrence: None)
  Receive Date: 20111019
  Receipt Date: 20110128
  Transmission Date: 20120403
  Serious: No
  Sender: FDA-Public Use
  Company Number: US-BRISTOL-MYERS SQUIBB COMPANY-15516685

PATIENT
  Age: 43 Year
  Sex: Female
  Weight: 82 kg

DRUGS (5)
  1. COREG [Concomitant]
  2. AVALIDE [Suspect]
     Indication: HYPERTENSION
     Dosage: 1DF=300MG/25MG
     Dates: start: 20080101
  3. GABAPENTIN [Concomitant]
     Indication: NEUROPATHY PERIPHERAL
  4. LANTUS [Concomitant]
  5. HUMALOG [Concomitant]

REACTIONS (4)
  - BLOOD PRESSURE INCREASED [None]
  - NECK PAIN [None]
  - HEADACHE [None]
  - FATIGUE [None]
